FAERS Safety Report 4539921-8 (Version None)
Quarter: 2004Q4

REPORT INFORMATION
  Report Type: 
  Country: None (occurrence: None)
  Receive Date: 20041223
  Receipt Date: 20041215
  Transmission Date: 20050328
  Serious: Yes (Other)
  Sender: FDA-Public Use
  Company Number: 2004RL000151

PATIENT
  Age: 51 Year
  Sex: Female

DRUGS (4)
  1. ISRADIPINE CR (ISRADIPINE CR) (5 MG) [Suspect]
     Indication: HYPERTENSION
     Dosage: 5 MG; QD
     Dates: start: 20041122, end: 20041123
  2. CONCOR [Concomitant]
  3. RAMIL (SIC) [Concomitant]
  4. SIMVAX [Concomitant]

REACTIONS (5)
  - ERYTHEMA [None]
  - HEADACHE [None]
  - NAUSEA [None]
  - OEDEMA PERIPHERAL [None]
  - VOMITING [None]
